FAERS Safety Report 13567780 (Version 1)
Quarter: 2017Q2

REPORT INFORMATION
  Report Type: Spontaneous
  Country: None (occurrence: US)
  Receive Date: 20170521
  Receipt Date: 20170521
  Transmission Date: 20170830
  Serious: Yes (Hospitalization)
  Sender: FDA-Public Use
  Company Number: None

PATIENT
  Age: 55 Year
  Sex: Male
  Weight: 64.3 kg

DRUGS (3)
  1. MEMANTINE HYDROCHLORIDE. [Suspect]
     Active Substance: MEMANTINE HYDROCHLORIDE
     Dates: end: 20170508
  2. DEXAMETHASONE. [Concomitant]
     Active Substance: DEXAMETHASONE
  3. HYDROCODONE-ACETAMINOPHEN [Concomitant]
     Active Substance: ACETAMINOPHEN\HYDROCODONE

REACTIONS (10)
  - Headache [None]
  - Pleural effusion [None]
  - Chest X-ray abnormal [None]
  - Neoplasm progression [None]
  - Dyspnoea [None]
  - Cough [None]
  - Abdominal discomfort [None]
  - Tachycardia [None]
  - Chest pain [None]
  - Brain oedema [None]

NARRATIVE: CASE EVENT DATE: 20170421
